FAERS Safety Report 4308569-2 (Version None)
Quarter: 2004Q1

REPORT INFORMATION
  Report Type: 
  Country: None (occurrence: None)
  Receive Date: 20040226
  Receipt Date: 20030722
  Transmission Date: 20041129
  Serious: Yes (Hospitalization, Other)
  Sender: FDA-Public Use
  Company Number: 2003155751US

PATIENT
  Age: 67 Year
  Sex: Female
  Weight: 70.3 kg

DRUGS (4)
  1. CELEBREX [Suspect]
     Indication: RHEUMATOID ARTHRITIS
     Dosage: 400 MG, QD;  200 MG,
     Dates: start: 19990201, end: 20030320
  2. CELEBREX [Suspect]
     Indication: RHEUMATOID ARTHRITIS
     Dosage: 400 MG, QD;  200 MG,
     Dates: start: 20030505
  3. PLAVIX [Suspect]
     Indication: PROPHYLAXIS
     Dosage: 1 DF, QD,
     Dates: end: 20030321
  4. URECHOLINE (BETHANECHOL CHLORIDE) [Concomitant]

REACTIONS (2)
  - GASTROINTESTINAL HAEMORRHAGE [None]
  - HAEMOGLOBIN DECREASED [None]
